FAERS Safety Report 14959418 (Version 1)
Quarter: 2018Q2

REPORT INFORMATION
  Report Type: Spontaneous
  Country: IT (occurrence: IT)
  Receive Date: 20180531
  Receipt Date: 20180531
  Transmission Date: 20180711
  Serious: Yes (Hospitalization)
  Sender: FDA-Public Use
  Company Number: IT-MYLANLABS-2018M1034942

PATIENT
  Age: 74 Year
  Sex: Female

DRUGS (1)
  1. PIPERACILLIN/TAZOBACTAM [Suspect]
     Active Substance: PIPERACILLIN SODIUM\TAZOBACTAM SODIUM
     Indication: ANTIBIOTIC PROPHYLAXIS
     Dosage: UNK

REACTIONS (6)
  - Dysentery [Unknown]
  - Pain [Unknown]
  - Vomiting [Unknown]
  - Rectal haemorrhage [Unknown]
  - Anuria [Unknown]
  - Haematuria [Unknown]

NARRATIVE: CASE EVENT DATE: 20171114
